FAERS Safety Report 4416019-0 (Version None)
Quarter: 2004Q3

REPORT INFORMATION
  Report Type: 
  Country: None (occurrence: None)
  Receive Date: 20040802
  Receipt Date: 20040728
  Transmission Date: 20050211
  Serious: Yes (Death, Other)
  Sender: FDA-Public Use
  Company Number: 2004-07-0992

PATIENT
  Age: 58 Year
  Sex: Female
  Weight: 51.7101 kg

DRUGS (4)
  1. TEMODAL (TEMOZLOMIDE) CAPSULES [Suspect]
     Dosage: 160 MG QD ORAL
     Route: 048
     Dates: start: 20040421, end: 20040608
  2. PREDNISONE TAB [Concomitant]
  3. OMEPRAZOLE [Concomitant]
  4. DEPAKINE CHRONO (SODIUM VALPROATE) [Concomitant]

REACTIONS (4)
  - EMBOLISM [None]
  - FALL [None]
  - LIMB INJURY [None]
  - SUDDEN DEATH [None]
